FAERS Safety Report 21171600 (Version 1)
Quarter: 2022Q3

REPORT INFORMATION
  Report Type: Spontaneous
  Country: JP (occurrence: JP)
  Receive Date: 20220804
  Receipt Date: 20220804
  Transmission Date: 20221027
  Serious: Yes (Other)
  Sender: FDA-Public Use
  Company Number: JP-PFIZER INC-PV202200030330

PATIENT
  Age: 9 Month
  Sex: Male
  Weight: 8.3 kg

DRUGS (1)
  1. COAGULATION FACTOR IX RECOMBINANT HUMAN [Suspect]
     Active Substance: COAGULATION FACTOR IX RECOMBINANT HUMAN
     Indication: Factor IX deficiency
     Dosage: UNK UNK, WEEKLY

REACTIONS (3)
  - Anaphylactic reaction [Recovered/Resolved]
  - Lip swelling [Recovered/Resolved]
  - Dyspnoea [Recovered/Resolved]
